FAERS Safety Report 16077332 (Version 1)
Quarter: 2019Q2

REPORT INFORMATION
  Report Type: Spontaneous
  Country: US (occurrence: US)
  Receive Date: 20190315
  Receipt Date: 20190315
  Transmission Date: 20190711
  Serious: Yes (Life-Threatening, Other)
  Sender: FDA-Public Use
  Company Number: None

PATIENT
  Age: 32 Year
  Sex: Female

DRUGS (1)
  1. MOMETASONE FUROATE 50MCG [Suspect]
     Active Substance: MOMETASONE FUROATE
     Indication: NASAL CONGESTION
     Dosage: ?          OTHER ROUTE:NASAL SPRAY?
     Dates: start: 20190205, end: 20190308

REACTIONS (3)
  - Status asthmaticus [None]
  - Asthma [None]
  - Wrong technique in device usage process [None]

NARRATIVE: CASE EVENT DATE: 20190305
